FAERS Safety Report 11441605 (Version 1)
Quarter: 2015Q3

REPORT INFORMATION
  Report Type: Spontaneous
  Country: US (occurrence: US)
  Receive Date: 20150901
  Receipt Date: 20150901
  Transmission Date: 20151125
  Serious: No
  Sender: FDA-Public Use
  Company Number: US-BIOGENIDEC-2015BI119630

PATIENT
  Sex: Female
  Weight: 67 kg

DRUGS (6)
  1. BENADRYL [Concomitant]
     Active Substance: DIPHENHYDRAMINE HYDROCHLORIDE
  2. HYDROCODONE [Concomitant]
     Active Substance: HYDROCODONE
  3. TECFIDERA [Suspect]
     Active Substance: DIMETHYL FUMARATE
     Indication: PRODUCT USED FOR UNKNOWN INDICATION
  4. BACLOFEN. [Concomitant]
     Active Substance: BACLOFEN
  5. AMLODIPINE [Concomitant]
     Active Substance: AMLODIPINE BESYLATE
  6. VITAMIN D [Concomitant]
     Active Substance: CHOLECALCIFEROL

REACTIONS (3)
  - Paraesthesia [Not Recovered/Not Resolved]
  - Spinal osteoarthritis [Not Recovered/Not Resolved]
  - Hypoaesthesia [Not Recovered/Not Resolved]
